FAERS Safety Report 26123148 (Version 2)
Quarter: 2025Q4

REPORT INFORMATION
  Report Type: Spontaneous
  Country: EU (occurrence: EU)
  Receive Date: 20251204
  Receipt Date: 20251224
  Transmission Date: 20260118
  Serious: Yes (Life-Threatening, Hospitalization)
  Sender: ELI LILLY AND COMPANY
  Company Number: None

PATIENT
  Age: 73 Year
  Sex: Female
  Weight: 88 kg

DRUGS (3)
  1. TALTZ [Suspect]
     Active Substance: IXEKIZUMAB
     Indication: Psoriasis
     Dosage: 2 DOSAGE FORM, LOADING DOSE
     Route: 058
     Dates: start: 20250504
  2. TALTZ [Suspect]
     Active Substance: IXEKIZUMAB
     Dosage: 80 MG, EVERY 14 DAYS
     Route: 058
  3. TALTZ [Suspect]
     Active Substance: IXEKIZUMAB
     Dosage: 80 MG, EVERY 28 DAYS
     Route: 058
     Dates: end: 20250822

REACTIONS (2)
  - Encephalitis autoimmune [Not Recovered/Not Resolved]
  - Creutzfeldt-Jakob disease [Unknown]

NARRATIVE: CASE EVENT DATE: 20250925
